FAERS Safety Report 10905744 (Version 1)
Quarter: 2015Q1

REPORT INFORMATION
  Report Type: Spontaneous
  Country: US (occurrence: None)
  Receive Date: 20150309
  Receipt Date: 20150309
  Transmission Date: 20150721
  Serious: Yes (Disabling)
  Sender: FDA-Public Use
  Company Number: None

PATIENT
  Age: 53 Year
  Sex: Female
  Weight: 65.77 kg

DRUGS (4)
  1. CIPROFLOXACIN HCL [Suspect]
     Active Substance: CIPROFLOXACIN HYDROCHLORIDE
     Indication: SINUSITIS
     Dosage: 2 TABLETS, TWICE DAILY, TAKEN BY MOUTH
     Route: 048
     Dates: start: 20150223, end: 20150305
  2. BUSPIRIDONE [Concomitant]
     Active Substance: BUSPIRONE HYDROCHLORIDE
  3. DEPAKOTE [Concomitant]
     Active Substance: DIVALPROEX SODIUM
  4. WELLBUTRIN [Concomitant]
     Active Substance: BUPROPION HYDROCHLORIDE

REACTIONS (6)
  - Fatigue [None]
  - Insomnia [None]
  - Heart rate increased [None]
  - Myalgia [None]
  - Mental impairment [None]
  - Night sweats [None]

NARRATIVE: CASE EVENT DATE: 20150223
